FAERS Safety Report 21414449 (Version 2)
Quarter: 2022Q4

REPORT INFORMATION
  Report Type: Spontaneous
  Country: JP (occurrence: JP)
  Receive Date: 20221006
  Receipt Date: 20221212
  Transmission Date: 20230113
  Serious: Yes (Other)
  Sender: FDA-Public Use
  Company Number: JP-ALK-ABELLO A/S-2022AA003210

PATIENT

DRUGS (5)
  1. MITICURE [Suspect]
     Active Substance: DERMATOPHAGOIDES FARINAE\DERMATOPHAGOIDES PTERONYSSINUS
     Indication: Product used for unknown indication
     Dosage: 3300 JAU
     Route: 060
     Dates: start: 20210129, end: 20210204
  2. MITICURE [Suspect]
     Active Substance: DERMATOPHAGOIDES FARINAE\DERMATOPHAGOIDES PTERONYSSINUS
     Dosage: 10000 JAU
     Route: 060
     Dates: start: 20210205, end: 20220817
  3. CRYPTOMERIA JAPONICA POLLEN [Suspect]
     Active Substance: CRYPTOMERIA JAPONICA POLLEN
     Indication: Product used for unknown indication
     Dosage: 2000 JAU
     Route: 060
     Dates: start: 20210730, end: 20210805
  4. CRYPTOMERIA JAPONICA POLLEN [Suspect]
     Active Substance: CRYPTOMERIA JAPONICA POLLEN
     Dosage: 5000 JAU
     Route: 060
     Dates: start: 20210806, end: 20220817
  5. MONTELUKAST [Concomitant]
     Active Substance: MONTELUKAST SODIUM

REACTIONS (5)
  - Nephrotic syndrome [Recovering/Resolving]
  - Nephrotic syndrome [Recovering/Resolving]
  - Nephrotic syndrome [Recovering/Resolving]
  - Nephrotic syndrome [Recovering/Resolving]
  - Nephrotic syndrome [Recovering/Resolving]

NARRATIVE: CASE EVENT DATE: 20210309
